FAERS Safety Report 9215932 (Version 1)
Quarter: 2013Q2

REPORT INFORMATION
  Report Type: Spontaneous
  Country: IT (occurrence: None)
  Receive Date: 20130404
  Receipt Date: 20130404
  Transmission Date: 20140414
  Serious: Yes (Hospitalization)
  Sender: FDA-Public Use
  Company Number: 2013AP004026

PATIENT
  Age: 69 Year
  Sex: Female

DRUGS (1)
  1. CLARITHROMYCIN (CLARITHROMYCIN) [Suspect]
     Indication: BRONCHITIS
     Dates: start: 20130215, end: 20130215

REACTIONS (3)
  - Erythema [None]
  - Pruritus [None]
  - Urticaria [None]
